FAERS Safety Report 5468485-X (Version None)
Quarter: 2007Q3

REPORT INFORMATION
  Report Type: 
  Country: None (occurrence: None)
  Receive Date: 20070926
  Receipt Date: 20070629
  Transmission Date: 20080115
  Serious: No
  Sender: FDA-Public Use
  Company Number: US-BRISTOL-MYERS SQUIBB COMPANY-13830799

PATIENT
  Age: 78 Year
  Sex: Female
  Weight: 72 kg

DRUGS (9)
  1. ORENCIA [Suspect]
     Indication: RHEUMATOID ARTHRITIS
     Dates: start: 20070501
  2. PREDNISONE ACETATE [Concomitant]
  3. LIPITOR [Concomitant]
  4. ZOLOFT [Concomitant]
  5. LYRICA [Concomitant]
  6. PROTONIX [Concomitant]
  7. CELLCEPT [Concomitant]
  8. DYCLONINE [Concomitant]
  9. AMBIEN [Concomitant]

REACTIONS (1)
  - WEIGHT INCREASED [None]
